FAERS Safety Report 6369746-2 (Version None)
Quarter: 2009Q3

REPORT INFORMATION
  Report Type: 
  Country: None (occurrence: None)
  Receive Date: 20090921
  Receipt Date: 20090921
  Transmission Date: 20100115
  Serious: Yes (Hospitalization, Disabling)
  Sender: FDA-Public Use
  Company Number: None

PATIENT
  Age: 57 Year
  Sex: Female

DRUGS (2)
  1. CARIMUNE NF [Suspect]
     Indication: IMMUNODEFICIENCY
     Dosage: 48 GRAMS 1-TIME IV DRIP
     Route: 041
     Dates: start: 20090918, end: 20090918
  2. CARIMUNE NF [Suspect]

REACTIONS (7)
  - ASTHMA [None]
  - BLOOD PRESSURE INCREASED [None]
  - BRONCHITIS [None]
  - DYSPNOEA [None]
  - FEAR [None]
  - PRURITUS [None]
  - TREATMENT FAILURE [None]
